FAERS Safety Report 8765340 (Version 1)
Quarter: 2012Q4

REPORT INFORMATION
  Report Type: 
  Country: JP (occurrence: JP)
  Receive Date: 20120830
  Receipt Date: 20120830
  Transmission Date: 20130627
  Serious: Yes (Other)
  Sender: FDA-Public Use
  Company Number: JP-ASTELLAS-2012JP007952

PATIENT
  Age: 11 Year
  Sex: Female
  Weight: 27.6 kg

DRUGS (1)
  1. FUNGUARD [Suspect]
     Indication: PNEUMONIA FUNGAL
     Dosage: UNK
     Route: 065

REACTIONS (2)
  - Drug ineffective [Unknown]
  - Bronchopulmonary aspergillosis [Unknown]
